FAERS Safety Report 19089186 (Version 2)
Quarter: 2021Q2

REPORT INFORMATION
  Report Type: Report from Study
  Country: KE (occurrence: KE)
  Receive Date: 20210403
  Receipt Date: 20210512
  Transmission Date: 20210717
  Serious: Yes (Hospitalization, Disabling, Other)
  Sender: FDA-Public Use
  Company Number: KE-CIPLA LTD.-2021KE02464

PATIENT

DRUGS (3)
  1. BACTRIM [Concomitant]
     Active Substance: SULFAMETHOXAZOLE\TRIMETHOPRIM
     Indication: PROPHYLAXIS
     Dosage: UNK
     Route: 065
     Dates: start: 20130826
  2. LOPINAVIR/RITONAVIR [Suspect]
     Active Substance: LOPINAVIR\RITONAVIR
     Indication: HIV INFECTION
     Dosage: 5 DOSAGE FORM, BID (200MG/50MG)
     Route: 048
     Dates: start: 20171201, end: 20180925
  3. ABACAVIR/LAMIVUDINE [Suspect]
     Active Substance: ABACAVIR\LAMIVUDINE
     Indication: HIV INFECTION
     Dosage: 2.5 DOSAGE FORM, BID (150MG/75MG)
     Route: 048
     Dates: start: 20171201, end: 20180925

REACTIONS (1)
  - Tibia fracture [Recovered/Resolved]

NARRATIVE: CASE EVENT DATE: 20180717
